FAERS Safety Report 5633326-4 (Version None)
Quarter: 2008Q1

REPORT INFORMATION
  Report Type: 
  Country: None (occurrence: None)
  Receive Date: 20080221
  Receipt Date: 20080212
  Transmission Date: 20080703
  Serious: Yes (Other)
  Sender: FDA-Public Use
  Company Number: US-JNJFOC-20071005247

PATIENT
  Sex: Female
  Weight: 73.48 kg

DRUGS (3)
  1. REMICADE [Suspect]
     Route: 042
  2. REMICADE [Suspect]
     Indication: SARCOIDOSIS
     Route: 042
  3. REMICADE [Suspect]
     Indication: UVEITIS
     Route: 042

REACTIONS (1)
  - JOINT ARTHROPLASTY [None]
